FAERS Safety Report 8468467 (Version 5)
Quarter: 2013Q1

REPORT INFORMATION
  Report Type: Report from Study
  Country: US (occurrence: US)
  Receive Date: 20120320
  Receipt Date: 20130327
  Transmission Date: 20140127
  Serious: Yes (Hospitalization)
  Sender: FDA-Public Use
  Company Number: US-GILEAD-2012-0052042

PATIENT
  Age: 75 Year
  Sex: Male

DRUGS (8)
  1. AZTREONAM LYSINE [Suspect]
     Indication: BRONCHIECTASIS
     Dosage: 75 MG, TID
     Route: 055
     Dates: start: 20111018, end: 20120306
  2. COMBIVENT [Concomitant]
     Indication: BRONCHIECTASIS
     Dosage: UNK
  3. HYPERTONIC SALINE SOLUTION [Concomitant]
     Indication: BRONCHIECTASIS
     Dosage: UNK
  4. ALBUTEROL SULFATE [Concomitant]
     Indication: PULMONARY FUNCTION TEST
     Dosage: UNK
     Dates: start: 20111004
  5. ALBUTEROL                          /00139501/ [Concomitant]
     Indication: DYSPNOEA
     Dosage: UNK
     Dates: start: 20120110
  6. DUONEB [Concomitant]
  7. ASPIRIN [Concomitant]
  8. N-ACETYLCYSTEINE [Concomitant]

REACTIONS (4)
  - Hypoxia [Recovered/Resolved with Sequelae]
  - Sputum increased [Recovered/Resolved]
  - Dyspnoea [Recovered/Resolved]
  - Cough [Recovered/Resolved]
